FAERS Safety Report 12598769 (Version 1)
Quarter: 2016Q3

REPORT INFORMATION
  Report Type: Spontaneous
  Country: US (occurrence: US)
  Receive Date: 20160726
  Receipt Date: 20160726
  Transmission Date: 20161109
  Serious: No
  Sender: FDA-Public Use
  Company Number: US-IMPAX LABORATORIES, INC-2015-IPXL-01348

PATIENT
  Age: 52 Year
  Sex: Female
  Weight: 76.19 kg

DRUGS (2)
  1. ADRENACLICK [Suspect]
     Active Substance: EPINEPHRINE
     Dosage: UNK
     Route: 065
     Dates: start: 201512, end: 201512
  2. ADRENACLICK [Suspect]
     Active Substance: EPINEPHRINE
     Indication: ANAPHYLACTIC REACTION
     Dosage: UNK
     Route: 065
     Dates: start: 201511, end: 201511

REACTIONS (3)
  - Contusion [Unknown]
  - Product quality issue [Unknown]
  - Drug ineffective [Unknown]

NARRATIVE: CASE EVENT DATE: 201511
